FAERS Safety Report 16167861 (Version 1)
Quarter: 2019Q2

REPORT INFORMATION
  Report Type: Spontaneous
  Country: FR (occurrence: FR)
  Receive Date: 20190408
  Receipt Date: 20190408
  Transmission Date: 20190711
  Serious: Yes (Hospitalization)
  Sender: FDA-Public Use
  Company Number: FR-SUN PHARMACEUTICAL INDUSTRIES LTD-2019RR-204210

PATIENT
  Age: 59 Year
  Sex: Female
  Weight: 47 kg

DRUGS (6)
  1. FLUOROURACILE [Suspect]
     Active Substance: FLUOROURACIL
     Indication: OROPHARYNGEAL SQUAMOUS CELL CARCINOMA
     Dosage: ()
     Route: 042
     Dates: start: 20180507, end: 20180510
  2. VALSARTAN. [Suspect]
     Active Substance: VALSARTAN
     Indication: HYPERTENSION
     Dosage: 160 MILLIGRAM, DAILY
     Route: 048
  3. HYDROCHLOROTHIAZIDE. [Suspect]
     Active Substance: HYDROCHLOROTHIAZIDE
     Indication: HYPERTENSION
     Dosage: 12.5 MILLIGRAM, DAILY
     Route: 048
  4. LERCANIDIPINE [Suspect]
     Active Substance: LERCANIDIPINE
     Indication: HYPERTENSION
     Dosage: 10 MILLIGRAM, DAILY
     Route: 048
  5. CISPLATINE [Suspect]
     Active Substance: CISPLATIN
     Indication: OROPHARYNGEAL SQUAMOUS CELL CARCINOMA
     Dosage: ()
     Route: 042
     Dates: start: 20180507, end: 20180510
  6. TAXOTERE [Suspect]
     Active Substance: DOCETAXEL
     Indication: OROPHARYNGEAL SQUAMOUS CELL CARCINOMA
     Dosage: ()
     Route: 042
     Dates: start: 20180507, end: 20180510

REACTIONS (5)
  - Neutropenia [Recovered/Resolved]
  - Hypokalaemia [Recovered/Resolved]
  - Hyponatraemia [Recovered/Resolved]
  - Pyrexia [Recovered/Resolved]
  - Hypotension [Recovered/Resolved]

NARRATIVE: CASE EVENT DATE: 20180510
